FAERS Safety Report 23100617 (Version 1)
Quarter: 2023Q4

REPORT INFORMATION
  Report Type: Spontaneous
  Country: US (occurrence: US)
  Receive Date: 20231024
  Receipt Date: 20231024
  Transmission Date: 20240110
  Serious: Yes (Hospitalization, Other)
  Sender: FDA-Public Use
  Company Number: US-AMNEAL PHARMACEUTICALS-2023-AMRX-03636

PATIENT
  Age: 44 Year
  Sex: Male

DRUGS (3)
  1. CHLORPROMAZINE HYDROCHLORIDE [Suspect]
     Active Substance: CHLORPROMAZINE HYDROCHLORIDE
     Indication: Impulse-control disorder
     Dosage: 100 MILLIGRAM, QID
  2. CHLORPROMAZINE HYDROCHLORIDE [Suspect]
     Active Substance: CHLORPROMAZINE HYDROCHLORIDE
     Indication: Intellectual disability
     Dosage: 50 MILLIGRAM, EVERY 6HR
  3. CHLORPROMAZINE HYDROCHLORIDE [Suspect]
     Active Substance: CHLORPROMAZINE HYDROCHLORIDE
     Indication: Prader-Willi syndrome

REACTIONS (2)
  - Rhabdomyolysis [Recovering/Resolving]
  - Renal failure [Recovering/Resolving]
